FAERS Safety Report 25874899 (Version 2)
Quarter: 2025Q4

REPORT INFORMATION
  Report Type: Report from Study
  Country: CA (occurrence: CA)
  Receive Date: 20251002
  Receipt Date: 20251028
  Transmission Date: 20260118
  Serious: Yes (Other)
  Sender: ALEXION PHARMACEUTICALS
  Company Number: CA-AstraZeneca-CH-00961094A

PATIENT
  Sex: Male

DRUGS (11)
  1. STRENSIQ [Suspect]
     Active Substance: ASFOTASE ALFA
     Indication: Hypophosphatasia
     Dosage: 2 MILLIGRAM/KILOGRAM, TIW
     Dates: start: 20150922
  2. STRENSIQ [Suspect]
     Active Substance: ASFOTASE ALFA
     Dosage: 148 MILLIGRAM, TIW
  3. STRENSIQ [Suspect]
     Active Substance: ASFOTASE ALFA
     Dosage: 148 MILLIGRAM, TIW
  4. TYLENOL [Concomitant]
     Active Substance: ACETAMINOPHEN
     Dosage: 3 PO (BID+PRN)
  5. FENTANYL [Concomitant]
     Active Substance: FENTANYL
     Dosage: 50 MILLIGRAM
     Route: 065
  6. KETOROLAC [Concomitant]
     Active Substance: KETOROLAC TROMETHAMINE
     Dosage: 10 MILLIGRAM, BID+PRN
  7. OXYCONTIN [Concomitant]
     Active Substance: OXYCODONE HYDROCHLORIDE
     Dosage: UNK UNK, PRN
  8. NADOLOL [Concomitant]
     Active Substance: NADOLOL
     Dosage: 160 MILLIGRAM,DIE
  9. FELODIPINE [Concomitant]
     Active Substance: FELODIPINE
     Dosage: 10 MILLIGRAM, DIE
  10. CALCIUM [Concomitant]
     Active Substance: CALCIUM
     Dosage: 1000 MILLIGRAM, /WEEK WEEK
  11. VITAMIN D [Concomitant]
     Active Substance: VITAMIN D NOS
     Dosage: 1000UNITS/WEEK
     Route: 065

REACTIONS (3)
  - Chronic myeloid leukaemia [Unknown]
  - Prostate cancer [Unknown]
  - Pollakiuria [Unknown]

NARRATIVE: CASE EVENT DATE: 20220101
